FAERS Safety Report 8826789 (Version 2)
Quarter: 2012Q4

REPORT INFORMATION
  Report Type: 
  Country: IT (occurrence: IT)
  Receive Date: 20121005
  Receipt Date: 20121017
  Transmission Date: 20130627
  Serious: Yes (Hospitalization)
  Sender: FDA-Public Use
  Company Number: IT-GLAXOSMITHKLINE-B0835602A

PATIENT
  Age: 28 Year
  Sex: Male

DRUGS (2)
  1. ATRIANCE [Suspect]
     Indication: PRECURSOR B-LYMPHOBLASTIC LYMPHOMA RECURRENT
     Dosage: 2475MG Per day
     Route: 042
     Dates: start: 20120518, end: 20120522
  2. CYTARABINE [Suspect]
     Indication: PRECURSOR B-LYMPHOBLASTIC LYMPHOMA RECURRENT
     Dosage: 50MG Per day
     Route: 037
     Dates: start: 20120416, end: 20120416

REACTIONS (3)
  - Paraesthesia [Unknown]
  - Ataxia [Unknown]
  - Anal sphincter atony [Unknown]
